FAERS Safety Report 21907282 (Version 1)
Quarter: 2023Q1

REPORT INFORMATION
  Report Type: Spontaneous
  Country: US (occurrence: None)
  Receive Date: 20230124
  Receipt Date: 20230124
  Transmission Date: 20230418
  Serious: Yes (Other)
  Sender: FDA-Public Use
  Company Number: None

PATIENT
  Age: 61 Year
  Sex: Female

DRUGS (12)
  1. DIMETHYL FUMARATE [Suspect]
     Active Substance: DIMETHYL FUMARATE
     Indication: Multiple sclerosis
     Route: 048
     Dates: start: 20210529
  2. AMLODIPINE [Concomitant]
     Active Substance: AMLODIPINE BESYLATE
  3. ATORVASTATIN [Concomitant]
     Active Substance: ATORVASTATIN
  4. BREO ELLIPTA INH [Concomitant]
  5. CETIRIZINE TAB [Concomitant]
  6. CLONAZEPAM [Concomitant]
  7. FLUTICASONE SPR [Concomitant]
  8. GABAPENTIN [Concomitant]
     Active Substance: GABAPENTIN
  9. LISINOPRIL [Concomitant]
     Active Substance: LISINOPRIL
  10. MELOXICAM TAB [Concomitant]
  11. OXYBUTYNIN [Concomitant]
     Active Substance: OXYBUTYNIN
  12. SAPHRIS SUB [Concomitant]

REACTIONS (1)
  - Throat cancer [None]

NARRATIVE: CASE EVENT DATE: 20230101
